FAERS Safety Report 18122185 (Version 4)
Quarter: 2020Q3

REPORT INFORMATION
  Report Type: Spontaneous
  Country: ES (occurrence: ES)
  Receive Date: 20200807
  Receipt Date: 20200908
  Transmission Date: 20201103
  Serious: Yes (Other)
  Sender: FDA-Public Use
  Company Number: ES-TEVA-2020-ES-1810128

PATIENT
  Age: 3 Month
  Sex: Male
  Weight: 7 kg

DRUGS (2)
  1. OP2455 ? OMEPRAZOL FORMULA MAGISTRAL [Suspect]
     Active Substance: OMEPRAZOLE
     Indication: GASTROOESOPHAGEAL REFLUX DISEASE
     Dosage: IT BEGINS WITH A DOSE OF 2 MG / ML FOR 10 DAYS, INCREASES TO 5 MG / ML 2 WEEKS AND FROM HERE IT WILL
     Route: 048
     Dates: start: 20200609, end: 20200715
  2. MINOXIDIL (782A) [Suspect]
     Active Substance: MINOXIDIL
     Route: 001
     Dates: start: 20200609, end: 20200715

REACTIONS (2)
  - Product formulation issue [Unknown]
  - Hypertrichosis [Unknown]

NARRATIVE: CASE EVENT DATE: 20200708
